FAERS Safety Report 25948035 (Version 1)
Quarter: 2025Q4

REPORT INFORMATION
  Report Type: Report from Study
  Country: GB (occurrence: GB)
  Receive Date: 20251022
  Receipt Date: 20251022
  Transmission Date: 20260117
  Serious: Yes (Death, Life-Threatening, Other)
  Sender: ROCHE
  Company Number: GB-ROCHE-10000408492

PATIENT

DRUGS (6)
  1. ATEZOLIZUMAB [Suspect]
     Active Substance: ATEZOLIZUMAB
     Indication: Neoplasm
     Route: 065
  2. PEMBROLIZUMAB [Suspect]
     Active Substance: PEMBROLIZUMAB
     Indication: Neoplasm
     Route: 065
  3. NIVOLUMAB [Suspect]
     Active Substance: NIVOLUMAB
     Indication: Neoplasm
     Route: 065
  4. IPILIMUMAB [Suspect]
     Active Substance: IPILIMUMAB
     Indication: Neoplasm
     Route: 065
  5. CEMIPLIMAB [Suspect]
     Active Substance: CEMIPLIMAB
     Indication: Neoplasm
     Route: 065
  6. AVELUMAB [Suspect]
     Active Substance: AVELUMAB
     Indication: Neoplasm
     Route: 065

REACTIONS (21)
  - Rash maculo-papular [Unknown]
  - Erythema [Unknown]
  - Dermatitis exfoliative generalised [Unknown]
  - Lichenoid keratosis [Unknown]
  - Pemphigoid [Unknown]
  - Urticaria [Unknown]
  - Erythema multiforme [Unknown]
  - Eczema [Unknown]
  - Skin disorder [Unknown]
  - Dermatitis bullous [Unknown]
  - Cutaneous vasculitis [Unknown]
  - Pyoderma gangrenosum [Unknown]
  - Systemic scleroderma [Unknown]
  - Dermatomyositis [Unknown]
  - Fasciitis [Unknown]
  - Myositis [Unknown]
  - Vitiligo [Unknown]
  - Skin toxicity [Fatal]
  - Toxic epidermal necrolysis [Unknown]
  - Colitis [Fatal]
  - Hepatitis [Fatal]
